FAERS Safety Report 18695446 (Version 1)
Quarter: 2021Q1

REPORT INFORMATION
  Report Type: Spontaneous
  Country: NL (occurrence: NO)
  Receive Date: 20210104
  Receipt Date: 20210104
  Transmission Date: 20210419
  Serious: Yes (Hospitalization)
  Sender: FDA-Public Use
  Company Number: NO-FRESENIUS KABI-FK202014045

PATIENT
  Age: 68 Year
  Sex: Female

DRUGS (7)
  1. TIOTROPIUM BROMIDE [Concomitant]
     Active Substance: TIOTROPIUM BROMIDE
     Indication: ASTHMA
     Route: 055
  2. ACETYLCYSTEINE SODIUM [Concomitant]
     Active Substance: ACETYLCYSTEINE SODIUM
     Indication: PRODUCT USED FOR UNKNOWN INDICATION
     Route: 048
  3. CARBOPLATIN (MANUFACTURER UNKNOWN) [Suspect]
     Active Substance: CARBOPLATIN
     Indication: NON-SMALL CELL LUNG CANCER STAGE IV
     Route: 041
     Dates: start: 20201015
  4. FLUTICASONE PROPIONATE/SALMETEROL XINAFOATE [Concomitant]
     Active Substance: FLUTICASONE PROPIONATE\SALMETEROL XINAFOATE
     Indication: ASTHMA
     Route: 055
  5. LERCANIDIPINE [Concomitant]
     Active Substance: LERCANIDIPINE
     Indication: HYPERTENSION
     Route: 048
  6. PEMETREXED (MANUFACTURER UNKNOWN) [Suspect]
     Active Substance: PEMETREXED
     Indication: NON-SMALL CELL LUNG CANCER STAGE IV
     Route: 041
     Dates: start: 20201015
  7. PEMBROLIZUMAB. [Suspect]
     Active Substance: PEMBROLIZUMAB
     Indication: NON-SMALL CELL LUNG CANCER STAGE IV
     Route: 042
     Dates: start: 20201015

REACTIONS (2)
  - Oesophagitis [Recovering/Resolving]
  - Immune-mediated pancreatitis [Recovering/Resolving]

NARRATIVE: CASE EVENT DATE: 20201022
